FAERS Safety Report 20799076 (Version 1)
Quarter: 2022Q2

REPORT INFORMATION
  Report Type: Spontaneous
  Country: US (occurrence: US)
  Receive Date: 20220507
  Receipt Date: 20220507
  Transmission Date: 20220721
  Serious: No
  Sender: FDA-Public Use
  Company Number: US-JNJFOC-20220505251

PATIENT

DRUGS (1)
  1. IMODIUM A-D [Suspect]
     Active Substance: LOPERAMIDE HYDROCHLORIDE
     Indication: Diarrhoea
     Dosage: TAKING THE IMODIUM AT THE HALF DOSE, TAKE ONE LIKE THREE OR FOUR TIMES A DAY
     Route: 065

REACTIONS (1)
  - Incorrect dose administered [Unknown]
